FAERS Safety Report 5145469-2 (Version None)
Quarter: 2006Q4

REPORT INFORMATION
  Report Type: 
  Country: None (occurrence: None)
  Receive Date: 20061102
  Receipt Date: 20061023
  Transmission Date: 20070319
  Serious: Yes (Other)
  Sender: FDA-Public Use
  Company Number: 2006BH014209

PATIENT
  Age: 73 Year
  Sex: Male

DRUGS (1)
  1. EXTRANEAL [Suspect]
     Indication: PERITONEAL DIALYSIS
     Dosage: 12.2L ; EVERY DAY ; IP
     Route: 033

REACTIONS (2)
  - BLOOD GLUCOSE INCREASED [None]
  - DEVICE INTERACTION [None]
